FAERS Safety Report 7775346-X (Version None)
Quarter: 2011Q3

REPORT INFORMATION
  Report Type: 
  Country: None (occurrence: None)
  Receive Date: 20110923
  Receipt Date: 20110909
  Transmission Date: 20111222
  Serious: Yes (Hospitalization)
  Sender: FDA-Public Use
  Company Number: PHHY2011JP45498

PATIENT
  Sex: Male
  Weight: 46 kg

DRUGS (7)
  1. VALSARTAN [Suspect]
     Indication: HYPERTENSION
     Dosage: 40 MG, QD
     Route: 048
     Dates: start: 20081008, end: 20090824
  2. ALLOPURINOL [Concomitant]
     Dosage: 100 MG, UNK
     Route: 048
     Dates: start: 20081008
  3. AMLODIPINE [Concomitant]
     Indication: HYPERTENSION
     Dosage: 5 MG, UNK
     Route: 048
     Dates: start: 20090331
  4. BEZATOL - SLOW RELEASE [Concomitant]
     Dosage: 200 MG, UNK
     Route: 048
     Dates: start: 20100908
  5. FENOFIBRATE [Concomitant]
     Route: 048
     Dates: start: 20100908
  6. VALSARTAN [Suspect]
     Dosage: 40 MG, QD
     Route: 048
     Dates: start: 20100203, end: 20100225
  7. VALSARTAN [Suspect]
     Dosage: 40 MG, QD
     Route: 048
     Dates: start: 20100609

REACTIONS (1)
  - OESOPHAGEAL CARCINOMA [None]
